FAERS Safety Report 10403257 (Version 1)
Quarter: 2014Q3

REPORT INFORMATION
  Report Type: Spontaneous
  Country: FR (occurrence: FR)
  Receive Date: 20140822
  Receipt Date: 20140822
  Transmission Date: 20150326
  Serious: Yes (Hospitalization, Other)
  Sender: FDA-Public Use
  Company Number: FR-PFIZER INC-2014234072

PATIENT
  Age: 66 Year
  Sex: Female

DRUGS (11)
  1. LASILIX [Suspect]
     Active Substance: FUROSEMIDE
     Dosage: 40 MG STRENGTH, UNK
  2. TRIATEC [Suspect]
     Active Substance: RAMIPRIL
     Dosage: 7.5 MG STRENGTH, UNK
  3. AUGMENTIN [Suspect]
     Active Substance: AMOXICILLIN\CLAVULANATE POTASSIUM
     Indication: SUPERINFECTION
     Dosage: 1 G, ALTERNATE DAY
     Route: 048
     Dates: start: 20140507, end: 20140522
  4. ROCEPHINE [Suspect]
     Active Substance: CEFTRIAXONE SODIUM
     Indication: ANTIBIOTIC THERAPY
     Dosage: 1 G, UNK
     Route: 058
     Dates: start: 20140528, end: 20140606
  5. HUMALOG [Concomitant]
     Active Substance: INSULIN LISPRO
     Dosage: UNK
  6. CARDENSIEL [Concomitant]
     Active Substance: BISOPROLOL FUMARATE
     Dosage: UNK
  7. CALCIDOSE [Concomitant]
     Active Substance: CALCIUM CARBONATE
     Dosage: UNK
  8. ATORVASTATIN [Concomitant]
     Active Substance: ATORVASTATIN
     Dosage: UNK
  9. PANTOPRAZOLE [Concomitant]
     Active Substance: PANTOPRAZOLE SODIUM
     Dosage: UNK
  10. LANTUS [Concomitant]
     Active Substance: INSULIN GLARGINE
     Dosage: UNK
  11. AMLOR [Concomitant]
     Active Substance: AMLODIPINE BESYLATE
     Dosage: UNK

REACTIONS (3)
  - Clostridium difficile colitis [Recovered/Resolved]
  - Renal failure acute [Not Recovered/Not Resolved]
  - Superinfection [Recovering/Resolving]

NARRATIVE: CASE EVENT DATE: 2014
